FAERS Safety Report 5505214-5 (Version None)
Quarter: 2007Q4

REPORT INFORMATION
  Report Type: 
  Country: None (occurrence: None)
  Receive Date: 20071102
  Receipt Date: 20071025
  Transmission Date: 20080405
  Serious: Yes (Other)
  Sender: FDA-Public Use
  Company Number: US-BAYER-200713088BCC

PATIENT
  Age: 33 Year
  Sex: Male
  Weight: 79 kg

DRUGS (3)
  1. RID LICE SHAMPOO [Suspect]
     Indication: LICE INFESTATION
     Route: 061
     Dates: start: 20070701
  2. RID LICE SHAMPOO [Suspect]
     Route: 061
     Dates: start: 20070912
  3. RID HOUSEHOLD SPRAY [Suspect]
     Indication: LICE INFESTATION
     Dates: start: 20070916

REACTIONS (8)
  - ANAPHYLACTIC REACTION [None]
  - DYSPNOEA [None]
  - GAIT DISTURBANCE [None]
  - HYPERSENSITIVITY [None]
  - RASH [None]
  - SKIN DISORDER [None]
  - THROAT TIGHTNESS [None]
  - URTICARIA [None]
